FAERS Safety Report 6914395-8 (Version None)
Quarter: 2010Q3

REPORT INFORMATION
  Report Type: 
  Country: None (occurrence: None)
  Receive Date: 20100809
  Receipt Date: 20100803
  Transmission Date: 20110219
  Serious: Yes (Life-Threatening)
  Sender: FDA-Public Use
  Company Number: FR-ASTRAZENECA-2010SE36155

PATIENT
  Age: 11914 Day
  Sex: Female

DRUGS (3)
  1. DIPRIVAN [Suspect]
     Indication: INDUCTION OF ANAESTHESIA
     Route: 042
     Dates: start: 20100705
  2. SUCCINYLCHOLINE CHLORIDE [Suspect]
     Indication: INDUCTION OF ANAESTHESIA
     Route: 042
     Dates: start: 20100705
  3. SUFENTANIL MYLAN [Suspect]
     Indication: INDUCTION OF ANAESTHESIA
     Route: 042
     Dates: start: 20100705

REACTIONS (2)
  - BRONCHOSPASM [None]
  - CIRCULATORY COLLAPSE [None]
